FAERS Safety Report 8894286 (Version 1)
Quarter: 2012Q4

REPORT INFORMATION
  Report Type: 
  Country: US (occurrence: US)
  Receive Date: 20121107
  Receipt Date: 20121107
  Transmission Date: 20130627
  Serious: No
  Sender: FDA-Public Use
  Company Number: US-AMGEN-USASP2011059942

PATIENT
  Sex: Male

DRUGS (2)
  1. ENBREL [Suspect]
     Indication: RHEUMATOID ARTHRITIS
     Dosage: 50 mg, qwk
     Dates: start: 20061101
  2. LEFLUNOMIDE [Concomitant]
     Dosage: 1 UNK, UNK
     Dates: start: 2010

REACTIONS (1)
  - Fungal infection [Not Recovered/Not Resolved]
